FAERS Safety Report 19785254 (Version 1)
Quarter: 2021Q3

REPORT INFORMATION
  Report Type: Spontaneous
  Country: US (occurrence: US)
  Receive Date: 20210903
  Receipt Date: 20210903
  Transmission Date: 20211014
  Serious: No
  Sender: FDA-Public Use
  Company Number: US-EISAI MEDICAL RESEARCH-EC-2021-098662

PATIENT
  Sex: Female

DRUGS (4)
  1. LENVATINIB [Suspect]
     Active Substance: LENVATINIB
     Route: 048
  2. PEMBROLIZUMAB. [Concomitant]
     Active Substance: PEMBROLIZUMAB
  3. LENVATINIB [Suspect]
     Active Substance: LENVATINIB
     Indication: ENDOMETRIAL CANCER METASTATIC
     Route: 048
  4. LENVATINIB [Suspect]
     Active Substance: LENVATINIB
     Route: 048

REACTIONS (2)
  - Diarrhoea [Unknown]
  - Fatigue [Unknown]
